FAERS Safety Report 4405977-6 (Version None)
Quarter: 2004Q3

REPORT INFORMATION
  Report Type: 
  Country: None (occurrence: None)
  Receive Date: 20040723
  Receipt Date: 20040226
  Transmission Date: 20050211
  Serious: No
  Sender: FDA-Public Use
  Company Number: US-GLAXOSMITHKLINE-A0500131A

PATIENT
  Age: 72 Year
  Sex: Male

DRUGS (9)
  1. AVANDIA [Suspect]
     Dosage: 4MG PER DAY
     Route: 048
  2. TYLENOL [Concomitant]
  3. LISINOPRIL [Concomitant]
  4. HYDROCHLOROTHIAZIDE AND LISINOPRIL [Concomitant]
  5. ASPIRIN [Concomitant]
  6. FELODIPINE [Concomitant]
  7. ZOCOR [Concomitant]
  8. DOCUSATE [Concomitant]
  9. CEPHALEXIN [Concomitant]

REACTIONS (2)
  - BLOOD GLUCOSE INCREASED [None]
  - NASOPHARYNGITIS [None]
